FAERS Safety Report 14757990 (Version 1)
Quarter: 2018Q2

REPORT INFORMATION
  Report Type: Spontaneous
  Country: US (occurrence: US)
  Receive Date: 20180409
  Receipt Date: 20180409
  Transmission Date: 20180711
  Serious: Yes (Life-Threatening)
  Sender: FDA-Public Use
  Company Number: None

PATIENT
  Age: 79 Year
  Sex: Male
  Weight: 57.15 kg

DRUGS (7)
  1. KEPPRA [Concomitant]
     Active Substance: LEVETIRACETAM
  2. GABAPENTIN. [Concomitant]
     Active Substance: GABAPENTIN
  3. AUSTEDO [Suspect]
     Active Substance: DEUTETRABENAZINE
     Indication: DYSKINESIA
     Route: 048
     Dates: start: 20180320
  4. LORAZEPAM. [Concomitant]
     Active Substance: LORAZEPAM
  5. BUSPIRONE [Concomitant]
     Active Substance: BUSPIRONE HYDROCHLORIDE
  6. TRAZODONE [Concomitant]
     Active Substance: TRAZODONE HYDROCHLORIDE
  7. AUSTEDO [Suspect]
     Active Substance: DEUTETRABENAZINE
     Indication: DYSKINESIA
     Dosage: 15 MG(6 MG + 9 MG)
     Route: 048
     Dates: start: 20180320

REACTIONS (3)
  - Disorganised speech [None]
  - Aggression [None]
  - Movement disorder [None]

NARRATIVE: CASE EVENT DATE: 20180406
